FAERS Safety Report 7928366-6 (Version None)
Quarter: 2011Q4

REPORT INFORMATION
  Report Type: 
  Country: None (occurrence: None)
  Receive Date: 20111118
  Receipt Date: 20111115
  Transmission Date: 20120403
  Serious: Yes (Life-Threatening, Hospitalization)
  Sender: FDA-Public Use
  Company Number: PHHY2011GB100225

PATIENT
  Sex: Male
  Weight: 96 kg

DRUGS (9)
  1. ZOLMITRIPTAN [Concomitant]
     Dosage: UNK UKN, UNK
  2. ZOPICLONE [Concomitant]
     Dosage: UNK UKN, UNK
  3. TOPIRAMATE [Suspect]
     Dosage: 50MG UNK
     Dates: start: 20100312, end: 20100414
  4. TOPIRAMATE [Suspect]
     Indication: MIGRAINE PROPHYLAXIS
     Dosage: 25MG
     Route: 048
     Dates: start: 20100212
  5. VALPROATE SODIUM [Concomitant]
     Dosage: UNK UKN, UNK
  6. ESCITALOPRAM [Concomitant]
     Dosage: UNK UKN, UNK
  7. REPAGLINIDE [Concomitant]
     Dosage: UNK UKN, UNK
  8. DOTHIEPIN HYDROCHLORIDE [Concomitant]
     Dosage: UNK UKN, UNK
  9. TRAMADOL HCL [Concomitant]
     Dosage: UNK UKN, UNK

REACTIONS (3)
  - TRAUMATIC LIVER INJURY [None]
  - INTENTIONAL SELF-INJURY [None]
  - MOOD ALTERED [None]
